FAERS Safety Report 4887314-6 (Version None)
Quarter: 2005Q4

REPORT INFORMATION
  Report Type: 
  Country: None (occurrence: None)
  Receive Date: 20051220
  Receipt Date: 20050107
  Transmission Date: 20060501
  Serious: Yes (Other)
  Sender: FDA-Public Use
  Company Number: HQWYE591012JAN05

PATIENT
  Age: 37 Year
  Sex: Female
  Weight: 52.21 kg

DRUGS (8)
  1. EFFEXOR XR [Suspect]
     Indication: DEPRESSION
     Dosage: 150 MG 1 X PER 1 DAY, ORAL
     Route: 048
     Dates: end: 20041206
  2. EFFEXOR XR [Suspect]
     Indication: GENERALISED ANXIETY DISORDER
     Dosage: 150 MG 1 X PER 1 DAY, ORAL
     Route: 048
     Dates: end: 20041206
  3. EFFEXOR XR [Suspect]
     Indication: PANIC DISORDER
     Dosage: 150 MG 1 X PER 1 DAY, ORAL
     Route: 048
     Dates: end: 20041206
  4. EFFEXOR XR [Suspect]
     Indication: DEPRESSION
     Dosage: 150 MG 1 X PER 1 DAY, ORAL
     Route: 048
     Dates: start: 20041211
  5. EFFEXOR XR [Suspect]
     Indication: GENERALISED ANXIETY DISORDER
     Dosage: 150 MG 1 X PER 1 DAY, ORAL
     Route: 048
     Dates: start: 20041211
  6. EFFEXOR XR [Suspect]
     Indication: PANIC DISORDER
     Dosage: 150 MG 1 X PER 1 DAY, ORAL
     Route: 048
     Dates: start: 20041211
  7. COCAINE (COCAINE) [Suspect]
     Dates: start: 20041206, end: 20041206
  8. OPIOIDS (OPIOIDS) [Suspect]

REACTIONS (6)
  - AGITATION [None]
  - DRUG SCREEN POSITIVE [None]
  - DRUG WITHDRAWAL SYNDROME [None]
  - FATIGUE [None]
  - TINNITUS [None]
  - VISION BLURRED [None]
